FAERS Safety Report 8053486-8 (Version None)
Quarter: 2011Q4

REPORT INFORMATION
  Report Type: 
  Country: None (occurrence: None)
  Receive Date: 20111213
  Receipt Date: 20111005
  Transmission Date: 20120403
  Serious: No
  Sender: FDA-Public Use
  Company Number: 2011SP047261

PATIENT
  Age: 37 Year
  Sex: Male

DRUGS (2)
  1. SAPHRIS [Suspect]
     Indication: SCHIZOPHRENIA
     Dosage: 5 MG;QD;SL
     Route: 060
     Dates: start: 20110201
  2. BUPROPION HYDROCHLORIDE [Concomitant]

REACTIONS (5)
  - SOMNOLENCE [None]
  - INAPPROPRIATE SCHEDULE OF DRUG ADMINISTRATION [None]
  - FATIGUE [None]
  - UNDERDOSE [None]
  - ASTHENIA [None]
